FAERS Safety Report 9812194 (Version 1)
Quarter: 2014Q1

REPORT INFORMATION
  Report Type: Spontaneous
  Country: AR (occurrence: AR)
  Receive Date: 20140112
  Receipt Date: 20140112
  Transmission Date: 20141002
  Serious: Yes (Other)
  Sender: FDA-Public Use
  Company Number: AR-AMGEN-ARGSP2014001212

PATIENT
  Age: 62 Year
  Sex: Female

DRUGS (1)
  1. ENBREL [Suspect]
     Indication: RHEUMATOID ARTHRITIS
     Dosage: 50 MG, EVERY 15 DAYS
     Route: 065
     Dates: start: 20061031

REACTIONS (6)
  - Renal failure [Unknown]
  - Neoplasm malignant [Unknown]
  - Renal disorder [Unknown]
  - Decreased immune responsiveness [Unknown]
  - Gait disturbance [Unknown]
  - Urinary tract infection [Unknown]
